FAERS Safety Report 21257261 (Version 2)
Quarter: 2022Q3

REPORT INFORMATION
  Report Type: Spontaneous
  Country: IT (occurrence: None)
  Receive Date: 20220826
  Receipt Date: 20220902
  Transmission Date: 20221027
  Serious: Yes (Hospitalization, Other)
  Sender: FDA-Public Use
  Company Number: IT-VistaPharm, Inc.-VER202208-000708

PATIENT
  Sex: Male

DRUGS (3)
  1. OXYCODONE [Suspect]
     Active Substance: OXYCODONE
     Indication: Abdominal pain
     Dosage: 30 MG/DAY
     Route: 065
  2. METHADONE [Suspect]
     Active Substance: METHADONE HYDROCHLORIDE
     Indication: Abdominal pain
     Dosage: UP TO 5 MG (TITRATED DOSE)
     Route: 042
  3. METHADONE [Suspect]
     Active Substance: METHADONE HYDROCHLORIDE
     Dosage: 15 MG/DAY
     Route: 048

REACTIONS (2)
  - Urinary retention [Recovered/Resolved]
  - Drug ineffective [Unknown]
